FAERS Safety Report 9287718 (Version 5)
Quarter: 2013Q3

REPORT INFORMATION
  Report Type: Report from Study
  Country: US (occurrence: US)
  Receive Date: 20130514
  Receipt Date: 20130812
  Transmission Date: 20140515
  Serious: Yes (Hospitalization)
  Sender: FDA-Public Use
  Company Number: US-ROCHE-1221368

PATIENT
  Age: 59 Year
  Sex: Female
  Weight: 110.78 kg

DRUGS (27)
  1. VEMURAFENIB [Suspect]
     Indication: METASTATIC MALIGNANT MELANOMA
     Dosage: LAST DOSE PRIOR TO SAE: 27/APR/2013
     Route: 048
     Dates: start: 20121015
  2. GDC-0973 [Suspect]
     Indication: METASTATIC MALIGNANT MELANOMA
     Dosage: LAST DOSE PRIOR TO SAE: 27/APR/2013, 60 MG DAILY
     Route: 048
     Dates: start: 20121015
  3. NORCO [Concomitant]
     Indication: PAIN
     Dosage: 5/325MG
     Route: 048
     Dates: start: 20120901
  4. POTASSIUM CHLORIDE [Concomitant]
     Indication: HYPOKALAEMIA
     Dosage: ER
     Route: 048
     Dates: start: 20020101
  5. POTASSIUM CHLORIDE [Concomitant]
     Dosage: 5 CAPSULES
     Route: 048
     Dates: start: 20130406
  6. POTASSIUM CHLORIDE [Concomitant]
     Route: 048
  7. XANAX [Concomitant]
     Indication: ANXIETY
     Route: 048
     Dates: start: 20120901
  8. OMEPRAZOLE [Concomitant]
     Indication: DYSPEPSIA
     Route: 048
     Dates: start: 20000101
  9. OMEPRAZOLE [Concomitant]
     Route: 048
  10. MIRTAZAPINE [Concomitant]
     Indication: DEPRESSION
     Route: 048
     Dates: start: 20050101
  11. MIRTAZAPINE [Concomitant]
     Route: 048
  12. TIZANIDINE HCL [Concomitant]
     Indication: FIBROMYALGIA
     Route: 048
     Dates: start: 20000101
  13. TIZANIDINE HCL [Concomitant]
     Route: 048
  14. LORAZEPAM [Concomitant]
     Indication: ANXIETY
     Route: 048
     Dates: start: 20120301
  15. LORAZEPAM [Concomitant]
     Route: 048
  16. CYMBALTA [Concomitant]
     Indication: FIBROMYALGIA
     Route: 048
     Dates: start: 20000101
  17. CYMBALTA [Concomitant]
     Route: 048
  18. IBUPROFEN [Concomitant]
     Indication: PAIN
     Route: 048
     Dates: start: 20120312
  19. IBUPROFEN [Concomitant]
     Indication: INFLAMMATION
  20. AMLODIPINE [Concomitant]
     Indication: HYPERTENSION
     Route: 048
     Dates: start: 20121210, end: 20130502
  21. AMLODIPINE [Concomitant]
     Route: 048
     Dates: start: 20130502
  22. METOPROLOL SUCCINATE [Concomitant]
     Dosage: METOPROLOL SUCCINATE XL
     Route: 048
     Dates: start: 20121210, end: 20130502
  23. IMODIUM [Concomitant]
     Indication: DIARRHOEA
     Route: 048
     Dates: start: 20121201
  24. DILTIAZEM HCL [Concomitant]
     Route: 065
     Dates: start: 20120901, end: 20121210
  25. LISINOPRIL [Concomitant]
     Route: 065
     Dates: start: 20130502
  26. LISINOPRIL [Concomitant]
     Route: 048
  27. DAPTOMYCIN [Concomitant]
     Route: 048
     Dates: start: 20130206

REACTIONS (1)
  - Hypertension [Recovered/Resolved]
